FAERS Safety Report 23432395 (Version 1)
Quarter: 2024Q1

REPORT INFORMATION
  Report Type: Spontaneous
  Country: US (occurrence: None)
  Receive Date: 20240122
  Receipt Date: 20240122
  Transmission Date: 20240409
  Serious: No
  Sender: FDA-Public Use
  Company Number: None

PATIENT
  Sex: Female

DRUGS (1)
  1. SKYRIZI [Suspect]
     Active Substance: RISANKIZUMAB-RZAA
     Indication: Palmoplantar pustulosis
     Dosage: 150MG  EVERY 12 WEEKS SUBCUTANEOUS?
     Route: 058
     Dates: start: 202304

REACTIONS (6)
  - Therapeutic product effect decreased [None]
  - Therapeutic response shortened [None]
  - Drug ineffective [None]
  - Erythema [None]
  - Pruritus [None]
  - Skin burning sensation [None]
